FAERS Safety Report 8170728-9 (Version None)
Quarter: 2012Q1

REPORT INFORMATION
  Report Type: 
  Country: None (occurrence: None)
  Receive Date: 20120228
  Receipt Date: 20120213
  Transmission Date: 20120608
  Serious: Yes (Hospitalization)
  Sender: FDA-Public Use
  Company Number: NO-ROCHE-GNE289693

PATIENT

DRUGS (3)
  1. HEPARIN SODIUM [Suspect]
     Indication: DEEP VEIN THROMBOSIS
     Dosage: 5000 U, UNK, DOSE=5000 U
     Route: 040
  2. ALTEPLASE [Suspect]
     Indication: DEEP VEIN THROMBOSIS
     Dosage: 20 MG, UNK
     Route: 042
  3. HEPARIN SODIUM [Suspect]
     Dosage: 15 U/KG/H, UNK, DOSE=15 U/KG/H

REACTIONS (3)
  - DRUG INEFFECTIVE [None]
  - HAEMORRHAGE [None]
  - COMPARTMENT SYNDROME [None]
